FAERS Safety Report 6717722-X (Version None)
Quarter: 2010Q2

REPORT INFORMATION
  Report Type: 
  Country: None (occurrence: None)
  Receive Date: 20100507
  Receipt Date: 20100507
  Transmission Date: 20101027
  Serious: Yes (Hospitalization)
  Sender: FDA-Public Use
  Company Number: None

PATIENT
  Sex: Female
  Weight: 74.48 kg

DRUGS (2)
  1. CISPLATIN [Suspect]
     Dosage: 140 MG
     Dates: end: 20100430
  2. TAXOL [Suspect]
     Dosage: 252 MG
     Dates: end: 20100429

REACTIONS (10)
  - BRADYCARDIA [None]
  - CONFUSIONAL STATE [None]
  - CONVULSION [None]
  - DEHYDRATION [None]
  - DIZZINESS [None]
  - ELECTROLYTE IMBALANCE [None]
  - FATIGUE [None]
  - HYPONATRAEMIA [None]
  - HYPOTENSION [None]
  - LETHARGY [None]
